FAERS Safety Report 4831601-4 (Version None)
Quarter: 2005Q4

REPORT INFORMATION
  Report Type: 
  Country: None (occurrence: None)
  Receive Date: 20051118
  Receipt Date: 20050810
  Transmission Date: 20060501
  Serious: Yes (Hospitalization, Disabling)
  Sender: FDA-Public Use
  Company Number: US-MERCK-0508USA01993

PATIENT
  Age: 44 Year
  Sex: Male
  Weight: 86 kg

DRUGS (2)
  1. VIOXX [Suspect]
     Indication: ARTHRALGIA
     Route: 048
     Dates: start: 20020701, end: 20030801
  2. VIOXX [Suspect]
     Indication: TENDONITIS
     Route: 048
     Dates: start: 20020701, end: 20030801

REACTIONS (5)
  - ACUTE MYOCARDIAL INFARCTION [None]
  - CORONARY ARTERY DISEASE [None]
  - MYOCARDIAL ISCHAEMIA [None]
  - TENDONITIS [None]
  - VENTRICULAR TACHYCARDIA [None]
